FAERS Safety Report 20572827 (Version 1)
Quarter: 2022Q1

REPORT INFORMATION
  Report Type: Spontaneous
  Country: US (occurrence: US)
  Receive Date: 20220309
  Receipt Date: 20220309
  Transmission Date: 20220424
  Serious: Yes (Other)
  Sender: FDA-Public Use
  Company Number: US-PFIZER INC-202200358371

PATIENT
  Age: 53 Year
  Sex: Female

DRUGS (1)
  1. IBRANCE [Suspect]
     Active Substance: PALBOCICLIB
     Dosage: 125 MG
     Dates: start: 20210305

REACTIONS (6)
  - Leukopenia [Unknown]
  - Hot flush [Unknown]
  - Nodule [Unknown]
  - Dermal cyst [Unknown]
  - Arthralgia [Unknown]
  - Musculoskeletal stiffness [Unknown]
